FAERS Safety Report 24236463 (Version 7)
Quarter: 2025Q1

REPORT INFORMATION
  Report Type: Spontaneous
  Country: US (occurrence: US)
  Receive Date: 20240822
  Receipt Date: 20250307
  Transmission Date: 20250409
  Serious: Yes (Other)
  Sender: CSL BEHRING
  Company Number: US-BEH-2024177456

PATIENT
  Age: 35 Year
  Sex: Male

DRUGS (8)
  1. IDELVION [Suspect]
     Active Substance: COAGULATION FACTOR IX RECOMBINANT HUMAN
     Indication: Factor IX deficiency
     Dosage: 4000 IU, QW, SLOWLY IV PUSH ONCE WEEKLY FOR PROPHYLAXIS AND EVERY OTHER DAY FOR TWO DAYS AS NEEDED F
     Route: 042
     Dates: start: 202201
  2. IDELVION [Suspect]
     Active Substance: COAGULATION FACTOR IX RECOMBINANT HUMAN
     Indication: Factor IX deficiency
     Dosage: 4000 IU, QW, SLOWLY IV PUSH ONCE WEEKLY FOR PROPHYLAXIS AND EVERY OTHER DAY FOR TWO DAYS AS NEEDED F
     Route: 042
     Dates: start: 202201
  3. IDELVION [Suspect]
     Active Substance: COAGULATION FACTOR IX RECOMBINANT HUMAN
     Indication: Prophylaxis
     Route: 042
     Dates: start: 202201
  4. IDELVION [Suspect]
     Active Substance: COAGULATION FACTOR IX RECOMBINANT HUMAN
     Indication: Prophylaxis
     Route: 042
     Dates: start: 202201
  5. IDELVION [Suspect]
     Active Substance: COAGULATION FACTOR IX RECOMBINANT HUMAN
     Dosage: 4000 IU QW(3600-4400) SLOW IV PUSH ONCE WEEKLY FOR PROPHYLAXIS AND EVERY OTHER DAY AS (MINOR BLEED)
     Route: 042
     Dates: start: 202201
  6. IDELVION [Suspect]
     Active Substance: COAGULATION FACTOR IX RECOMBINANT HUMAN
     Dosage: 4000 IU QW(3600-4400) SLOW IV PUSH ONCE WEEKLY FOR PROPHYLAXIS AND EVERY OTHER DAY AS (MINOR BLEED)
     Route: 042
     Dates: start: 202201
  7. IDELVION [Suspect]
     Active Substance: COAGULATION FACTOR IX RECOMBINANT HUMAN
     Dosage: 8000 IU QOD, NEEDED FOR MINOR BLEEDING.(7200-8800) SLOW IV PUSH EVERY OTHER DAY FOR MAJOR BLEEDING
     Route: 042
     Dates: start: 202201
  8. IDELVION [Suspect]
     Active Substance: COAGULATION FACTOR IX RECOMBINANT HUMAN
     Dosage: 8000 IU QOD, NEEDED FOR MINOR BLEEDING.(7200-8800) SLOW IV PUSH EVERY OTHER DAY FOR MAJOR BLEEDING
     Route: 042
     Dates: start: 202201

REACTIONS (10)
  - Haemarthrosis [Unknown]
  - Haemorrhage [Unknown]
  - Haemorrhage [Not Recovered/Not Resolved]
  - Haemorrhage [Recovered/Resolved]
  - Haemarthrosis [Unknown]
  - Gingival bleeding [Unknown]
  - Fall [Unknown]
  - Haematoma [Unknown]
  - Pain [Unknown]
  - Haemarthrosis [Unknown]

NARRATIVE: CASE EVENT DATE: 20241022
